FAERS Safety Report 15589629 (Version 1)
Quarter: 2018Q4

REPORT INFORMATION
  Report Type: Spontaneous
  Country: US (occurrence: US)
  Receive Date: 20181106
  Receipt Date: 20181106
  Transmission Date: 20190205
  Serious: No
  Sender: FDA-Public Use
  Company Number: US-CHARTWELL PHARMA-2058449

PATIENT
  Age: 65 Year
  Sex: Female
  Weight: 90.72 kg

DRUGS (5)
  1. IRBESARTAN. [Concomitant]
     Active Substance: IRBESARTAN
     Dates: end: 20180504
  2. ATORVASTATIN [Concomitant]
     Active Substance: ATORVASTATIN
     Dates: end: 20180504
  3. DILTIAZEM. [Concomitant]
     Active Substance: DILTIAZEM
     Dates: end: 20180504
  4. DOXYCYCLINE HYCLATE. [Suspect]
     Active Substance: DOXYCYCLINE HYCLATE
     Indication: SINUSITIS
     Route: 048
  5. ASPIRIN. [Concomitant]
     Active Substance: ASPIRIN
     Dates: end: 20180504

REACTIONS (1)
  - Inflammation [Not Recovered/Not Resolved]
